FAERS Safety Report 17847709 (Version 1)
Quarter: 2020Q2

REPORT INFORMATION
  Report Type: Spontaneous
  Country: US (occurrence: US)
  Receive Date: 20200601
  Receipt Date: 20200601
  Transmission Date: 20200714
  Serious: Yes (Other)
  Sender: FDA-Public Use
  Company Number: US-NOVOPROD-730275

PATIENT
  Age: 79 Year
  Sex: Female

DRUGS (1)
  1. NOVOLIN N [Suspect]
     Active Substance: INSULIN HUMAN
     Indication: TYPE 2 DIABETES MELLITUS
     Dosage: 29 IU, QD(12 UNITS IN THE MORNING, 17 UNITS NIGHTLY)
     Route: 058
     Dates: start: 201901

REACTIONS (7)
  - Weight increased [Unknown]
  - Blood glucose increased [Not Recovered/Not Resolved]
  - SARS-CoV-2 test positive [Unknown]
  - Abdominal distension [Unknown]
  - Eructation [Unknown]
  - Injection site pain [Unknown]
  - Injection site haemorrhage [Unknown]

NARRATIVE: CASE EVENT DATE: 20200519
